FAERS Safety Report 8823692 (Version 2)
Quarter: 2014Q2

REPORT INFORMATION
  Report Type: Spontaneous
  Country: US (occurrence: US)
  Receive Date: 20121003
  Receipt Date: 20131024
  Transmission Date: 20141212
  Serious: No
  Sender: FDA-Public Use
  Company Number: US-PFIZER INC-2012243256

PATIENT
  Sex: Female

DRUGS (1)
  1. DILANTIN [Suspect]
     Dosage: 50 MG, UNK

REACTIONS (5)
  - Motor dysfunction [Unknown]
  - Dyspepsia [Unknown]
  - Drug intolerance [Unknown]
  - Product taste abnormal [Unknown]
  - Product shape issue [Unknown]
